FAERS Safety Report 13448016 (Version 1)
Quarter: 2017Q2

REPORT INFORMATION
  Report Type: Spontaneous
  Country: US (occurrence: US)
  Receive Date: 20170417
  Receipt Date: 20170417
  Transmission Date: 20170830
  Serious: Yes (Life-Threatening)
  Sender: FDA-Public Use
  Company Number: None

PATIENT
  Age: 88 Year
  Sex: Male
  Weight: 81.65 kg

DRUGS (9)
  1. METOPROLOL ER [Concomitant]
     Active Substance: METOPROLOL SUCCINATE
  2. IPRATROPIUM BROMIDE. [Concomitant]
     Active Substance: IPRATROPIUM BROMIDE
  3. XIIDRA [Suspect]
     Active Substance: LIFITEGRAST
     Indication: DRY EYE
     Route: 047
  4. SIMVASTATIN. [Concomitant]
     Active Substance: SIMVASTATIN
  5. BENICAR [Concomitant]
     Active Substance: OLMESARTAN MEDOXOMIL
  6. BAYER ASPIRIN [Concomitant]
     Active Substance: ASPIRIN
  7. CLOPIDOGREL [Concomitant]
     Active Substance: CLOPIDOGREL BISULFATE
  8. ALBUTEROL SULFATE INHALATION SOLUTION [Concomitant]
     Active Substance: ALBUTEROL SULFATE
  9. SALTER LABS AIR BS [Concomitant]

REACTIONS (6)
  - Rash [None]
  - Deafness unilateral [None]
  - Arthralgia [None]
  - Gait disturbance [None]
  - Ear pain [None]
  - Pain in extremity [None]

NARRATIVE: CASE EVENT DATE: 20161228
